FAERS Safety Report 4785442-7 (Version None)
Quarter: 2005Q3

REPORT INFORMATION
  Report Type: 
  Country: None (occurrence: None)
  Receive Date: 20050926
  Receipt Date: 20050913
  Transmission Date: 20060218
  Serious: No
  Sender: FDA-Public Use
  Company Number: CART-10372

PATIENT
  Age: 28 Year
  Sex: Male

DRUGS (2)
  1. CARTICEL [Suspect]
     Indication: ARTHROPATHY
     Dosage: 1 NA ONCE IS
     Dates: start: 20040722, end: 20040722
  2. VICODIN [Concomitant]

REACTIONS (8)
  - FAILURE OF IMPLANT [None]
  - JOINT DISLOCATION [None]
  - JOINT EFFUSION [None]
  - NAUSEA [None]
  - PAIN [None]
  - POST PROCEDURAL COMPLICATION [None]
  - SWELLING [None]
  - VOMITING [None]
